FAERS Safety Report 9176745 (Version 2)
Quarter: 2013Q2

REPORT INFORMATION
  Report Type: Spontaneous
  Country: GB (occurrence: GB)
  Receive Date: 20130321
  Receipt Date: 20130401
  Transmission Date: 20140414
  Serious: Yes (Other)
  Sender: FDA-Public Use
  Company Number: GB-PFIZER INC-2013092464

PATIENT
  Age: 37 Year
  Sex: Male

DRUGS (3)
  1. LYRICA [Suspect]
     Indication: ANXIETY
     Dosage: 25 MG, UNK
     Dates: start: 201010, end: 201011
  2. LYRICA [Suspect]
     Indication: INSOMNIA
     Dosage: 75 MG, UNK
     Dates: start: 201011
  3. LYRICA [Suspect]
     Dosage: 50 MG, UNK

REACTIONS (3)
  - Plasma cell myeloma [Unknown]
  - Neoplasm malignant [Unknown]
  - Back pain [Unknown]
